FAERS Safety Report 6415591-9 (Version None)
Quarter: 2009Q4

REPORT INFORMATION
  Report Type: 
  Country: None (occurrence: None)
  Receive Date: 20091022
  Receipt Date: 20091012
  Transmission Date: 20100525
  Serious: Yes (Other)
  Sender: FDA-Public Use
  Company Number: 238416K09USA

PATIENT
  Age: 53 Year
  Sex: Male
  Weight: 78 kg

DRUGS (6)
  1. REBIF [Suspect]
     Indication: MULTIPLE SCLEROSIS
     Dosage: 44 MCG, 3 IN 1 WEEKS, SUBCUTANEOUS
     Route: 058
     Dates: start: 20041022
  2. BACLOFEN [Concomitant]
  3. PREVACID [Concomitant]
  4. METOPROLOL (METOPORLOL /00376901/) [Concomitant]
  5. MOTRIN [Concomitant]
  6. ASPIRIN [Concomitant]

REACTIONS (2)
  - CATARACT [None]
  - GLAUCOMA [None]
